FAERS Safety Report 17952576 (Version 2)
Quarter: 2021Q3

REPORT INFORMATION
  Report Type: Report from Study
  Country: TW (occurrence: TW)
  Receive Date: 20200626
  Receipt Date: 20210805
  Transmission Date: 20211014
  Serious: Yes (Death)
  Sender: FDA-Public Use
  Company Number: NVSC2020TW179858

PATIENT
  Sex: Female

DRUGS (1)
  1. ALPELISIB [Suspect]
     Active Substance: ALPELISIB
     Indication: OVARIAN CANCER
     Dosage: UNK
     Route: 065

REACTIONS (1)
  - Choking [Fatal]
